FAERS Safety Report 11658221 (Version 2)
Quarter: 2018Q2

REPORT INFORMATION
  Report Type: Spontaneous
  Country: IL (occurrence: IL)
  Receive Date: 20151025
  Receipt Date: 20180507
  Transmission Date: 20180711
  Serious: Yes (Hospitalization)
  Sender: FDA-Public Use
  Company Number: IL-TEVA-604284ISR

PATIENT
  Age: 32 Year
  Sex: Female
  Weight: 75 kg

DRUGS (6)
  1. LOW MOLECULAR WEIGHT HEPARIN [Concomitant]
     Active Substance: UNSPECIFIED INGREDIENT
  2. CEFTRIAXONE. [Concomitant]
     Active Substance: CEFTRIAXONE
     Indication: PROPHYLAXIS
     Route: 042
  3. BUPIVACAINE. [Concomitant]
     Active Substance: BUPIVACAINE
     Indication: SPINAL ANAESTHESIA
     Dosage: 10 MG HYPERBARIC BUPIVACAINE (0.5%)
     Route: 037
  4. RINGER^S LACTATE SOLUTION [Concomitant]
     Route: 042
  5. MORPHINE [Suspect]
     Active Substance: MORPHINE
     Indication: SPINAL ANAESTHESIA
     Dosage: 150 ?G MORPHINE PRESERVATIVE FREE
     Route: 037
  6. RINGER^S LACTATE SOLUTION [Concomitant]
     Dosage: PARENTERAL FLUIDS (1000 ML OF RINGER LACTATE SOLUTION)
     Route: 051

REACTIONS (1)
  - Hypothermia [Recovered/Resolved]
